FAERS Safety Report 14317913 (Version 1)
Quarter: 2017Q4

REPORT INFORMATION
  Report Type: Spontaneous
  Country: US (occurrence: US)
  Receive Date: 20171221
  Receipt Date: 20171221
  Transmission Date: 20180321
  Serious: Yes (Life-Threatening)
  Sender: FDA-Public Use
  Company Number: None

PATIENT
  Age: 68 Year
  Sex: Female
  Weight: 96.75 kg

DRUGS (15)
  1. FOLATE [Concomitant]
     Active Substance: FOLATE SODIUM
  2. METATAXALONE (GENERIC SKELAXIN) [Concomitant]
  3. GABAPENTIN  (GENERIC NEURONTIN) [Concomitant]
  4. VITAMIN B12 [Concomitant]
     Active Substance: CYANOCOBALAMIN
  5. VITAMIN D [Concomitant]
     Active Substance: CHOLECALCIFEROL
  6. GENERIC XOPENEX [Suspect]
     Active Substance: LEVALBUTEROL HYDROCHLORIDE
     Indication: DYSPNOEA
     Route: 055
  7. METFORMIN [Concomitant]
     Active Substance: METFORMIN HYDROCHLORIDE
  8. DILTIAZEM HCL (GENERIC CARTIA XT) [Concomitant]
  9. LIDODERM [Concomitant]
     Active Substance: LIDOCAINE
  10. METHOTREXATE. [Concomitant]
     Active Substance: METHOTREXATE
  11. TRAMADOL HCL (GENERIC ULTRAM) [Concomitant]
  12. CENTRUM SILVER [Concomitant]
     Active Substance: MINERALS\VITAMINS
  13. ASPIRIN. [Concomitant]
     Active Substance: ASPIRIN
  14. CVS DRY EYE RELIEF [Concomitant]
  15. NASONEX [Concomitant]
     Active Substance: MOMETASONE FUROATE

REACTIONS (3)
  - Contraindicated drug prescribed [None]
  - Product formulation issue [None]
  - Product substitution issue [None]
